FAERS Safety Report 20160227 (Version 1)
Quarter: 2021Q4

REPORT INFORMATION
  Report Type: Spontaneous
  Country: AU (occurrence: AU)
  Receive Date: 20211208
  Receipt Date: 20211208
  Transmission Date: 20220303
  Serious: Yes (Life-Threatening)
  Sender: FDA-Public Use
  Company Number: AU-ABBVIE-21K-008-4189067-00

PATIENT
  Sex: Female

DRUGS (1)
  1. EPILIM [Suspect]
     Active Substance: VALPROATE SODIUM
     Indication: Seizure
     Route: 048

REACTIONS (6)
  - Depression [Unknown]
  - Abnormal behaviour [Unknown]
  - Anger [Unknown]
  - Tension [Unknown]
  - Condition aggravated [Unknown]
  - Withdrawal syndrome [Unknown]
